FAERS Safety Report 9223024 (Version 2)
Quarter: 2013Q2

REPORT INFORMATION
  Report Type: Spontaneous
  Country: GB (occurrence: GB)
  Receive Date: 20130410
  Receipt Date: 20130422
  Transmission Date: 20140414
  Serious: Yes (Hospitalization)
  Sender: FDA-Public Use
  Company Number: GB-ROCHE-GNE094025

PATIENT
  Age: 66 Year
  Sex: Female

DRUGS (7)
  1. ACTILYSE [Suspect]
     Indication: ACUTE MYOCARDIAL INFARCTION
     Route: 042
  2. ACTILYSE [Suspect]
     Dosage: BOLUS
     Route: 042
  3. ACTILYSE [Suspect]
     Dosage: 150 MG OVER 30 MIN THEN 35 MG OVER 60 MIN
     Route: 042
  4. STREPTOKINASE [Suspect]
     Indication: ACUTE MYOCARDIAL INFARCTION
     Route: 042
  5. ASPIRIN [Concomitant]
     Route: 048
  6. TICLOPIDINE [Concomitant]
     Route: 048
  7. HEPARIN [Concomitant]
     Indication: ACUTE MYOCARDIAL INFARCTION
     Route: 040

REACTIONS (2)
  - Haemorrhage [Recovered/Resolved]
  - Compartment syndrome [Recovered/Resolved]
